FAERS Safety Report 7773336-4 (Version None)
Quarter: 2011Q3

REPORT INFORMATION
  Report Type: 
  Country: None (occurrence: None)
  Receive Date: 20110922
  Receipt Date: 20110915
  Transmission Date: 20111222
  Serious: Yes (Other)
  Sender: FDA-Public Use
  Company Number: US-AMGEN-USASP2011047491

PATIENT
  Age: 67 Year
  Sex: Male

DRUGS (1)
  1. ENBREL [Suspect]
     Indication: PSORIATIC ARTHROPATHY
     Dosage: 50 MG, QWK
     Dates: start: 20110610

REACTIONS (9)
  - DEPRESSION [None]
  - PAIN [None]
  - PAIN IN EXTREMITY [None]
  - NAUSEA [None]
  - MALAISE [None]
  - BLOOD GLUCOSE DECREASED [None]
  - DYSPNOEA [None]
  - DIZZINESS [None]
  - DIARRHOEA [None]
